FAERS Safety Report 11710267 (Version 2)
Quarter: 2015Q4

REPORT INFORMATION
  Report Type: Spontaneous
  Country: US (occurrence: US)
  Receive Date: 20151104
  Receipt Date: 20151110
  Transmission Date: 20160304
  Serious: No
  Sender: FDA-Public Use
  Company Number: US-ELI_LILLY_AND_COMPANY-US201101005569

PATIENT
  Age: 57 Year
  Sex: Female

DRUGS (6)
  1. FORTEO [Suspect]
     Active Substance: TERIPARATIDE
     Indication: OSTEOPOROSIS
     Dosage: 20 UG, DAILY (1/D)
     Route: 065
  2. FORTEO [Suspect]
     Active Substance: TERIPARATIDE
     Dosage: 20 UG, DAILY (1/D)
     Route: 065
  3. FORTEO [Suspect]
     Active Substance: TERIPARATIDE
     Dosage: 20 UG, QD
     Route: 065
  4. FORTEO [Suspect]
     Active Substance: TERIPARATIDE
     Dosage: 20 UG, QD
  5. FORTEO [Suspect]
     Active Substance: TERIPARATIDE
     Dosage: 20 UG, QD
     Route: 065
  6. FORTEO [Suspect]
     Active Substance: TERIPARATIDE
     Dosage: 20 UG, QD
     Route: 065

REACTIONS (21)
  - Gastrointestinal disorder [Unknown]
  - Headache [Unknown]
  - Injection site rash [Not Recovered/Not Resolved]
  - Cystitis [Unknown]
  - Haematochezia [Unknown]
  - Panic attack [Not Recovered/Not Resolved]
  - Constipation [Unknown]
  - Mobility decreased [Unknown]
  - Decreased appetite [Unknown]
  - Malaise [Unknown]
  - Injection site swelling [Not Recovered/Not Resolved]
  - General physical health deterioration [Unknown]
  - Injection site bruising [Not Recovered/Not Resolved]
  - Kidney infection [Unknown]
  - Abdominal distension [Unknown]
  - Pain [Not Recovered/Not Resolved]
  - Drug dose omission [Unknown]
  - Bowel movement irregularity [Unknown]
  - Disturbance in attention [Not Recovered/Not Resolved]
  - Injection site pain [Not Recovered/Not Resolved]
  - Asthenia [Unknown]

NARRATIVE: CASE EVENT DATE: 201112
